FAERS Safety Report 5602645-X (Version None)
Quarter: 2008Q1

REPORT INFORMATION
  Report Type: 
  Country: None (occurrence: None)
  Receive Date: 20080125
  Receipt Date: 20080121
  Transmission Date: 20080703
  Serious: Yes (Hospitalization)
  Sender: FDA-Public Use
  Company Number: AU-BRISTOL-MYERS SQUIBB COMPANY-14050678

PATIENT
  Age: 85 Year
  Sex: Female

DRUGS (2)
  1. METOPROLOL TARTRATE [Suspect]
  2. PLAVIX [Suspect]
     Route: 048
     Dates: start: 20060730, end: 20070401

REACTIONS (4)
  - DIZZINESS [None]
  - DYSPHAGIA [None]
  - SPEECH DISORDER [None]
  - TACHYCARDIA [None]
